FAERS Safety Report 24898801 (Version 1)
Quarter: 2025Q1

REPORT INFORMATION
  Report Type: Spontaneous
  Country: CA (occurrence: CA)
  Receive Date: 20250129
  Receipt Date: 20250129
  Transmission Date: 20250409
  Serious: Yes (Other)
  Sender: CSL BEHRING
  Company Number: CA-BEH-2025193551

PATIENT
  Age: 62 Year
  Sex: Female

DRUGS (34)
  1. HUMAN IMMUNOGLOBULIN G [Suspect]
     Active Substance: HUMAN IMMUNOGLOBULIN G
     Indication: Secondary immunodeficiency
     Route: 065
  2. HUMAN IMMUNOGLOBULIN G [Suspect]
     Active Substance: HUMAN IMMUNOGLOBULIN G
     Route: 065
  3. HUMAN IMMUNOGLOBULIN G [Suspect]
     Active Substance: HUMAN IMMUNOGLOBULIN G
     Route: 065
  4. HUMAN IMMUNOGLOBULIN G [Suspect]
     Active Substance: HUMAN IMMUNOGLOBULIN G
     Route: 065
  5. HUMAN IMMUNOGLOBULIN G [Suspect]
     Active Substance: HUMAN IMMUNOGLOBULIN G
     Dosage: 90 ML, QW(1 EVERY 1 WEEKS)
     Route: 065
  6. HUMAN IMMUNOGLOBULIN G [Suspect]
     Active Substance: HUMAN IMMUNOGLOBULIN G
     Dosage: 80 ML, QW(1 EVERY 1 WEEKS)
     Route: 065
  7. HUMAN IMMUNOGLOBULIN G [Suspect]
     Active Substance: HUMAN IMMUNOGLOBULIN G
     Route: 065
  8. HUMAN IMMUNOGLOBULIN G [Suspect]
     Active Substance: HUMAN IMMUNOGLOBULIN G
     Dosage: 18 G, QW(1 EVERY 1 WEEKS)
     Route: 058
  9. BECLOMETHASONE [Concomitant]
     Active Substance: BECLOMETHASONE
     Indication: Sinusitis
     Dosage: UNK, BID
     Route: 065
  10. BECLOMETHASONE DIPROPIONATE [Concomitant]
     Active Substance: BECLOMETHASONE DIPROPIONATE
     Route: 065
  11. BECLOMETHASONE DIPROPIONATE [Concomitant]
     Active Substance: BECLOMETHASONE DIPROPIONATE
     Route: 065
  12. BIAXIN [Concomitant]
     Active Substance: CLARITHROMYCIN
     Dosage: 250 MG, BID (2 EVERY 1 DYS)
     Route: 065
  13. CANDESARTAN [Concomitant]
     Active Substance: CANDESARTAN
     Route: 065
  14. FLOVENT [Concomitant]
     Active Substance: FLUTICASONE PROPIONATE
     Route: 065
  15. FUROSEMIDE [Concomitant]
     Active Substance: FUROSEMIDE
     Route: 065
  16. HIZENTRA [Concomitant]
     Active Substance: HUMAN IMMUNOGLOBULIN G
     Route: 065
  17. HUMALOG [Concomitant]
     Active Substance: INSULIN LISPRO
     Route: 065
  18. LANTUS [Concomitant]
     Active Substance: INSULIN GLARGINE
     Route: 065
  19. LEVOMEPROMAZINE MALEATE [Concomitant]
     Active Substance: LEVOMEPROMAZINE MALEATE
     Route: 065
  20. LORAZEPAM [Concomitant]
     Active Substance: LORAZEPAM
     Route: 065
  21. LORAZEPAM [Concomitant]
     Active Substance: LORAZEPAM
     Route: 065
  22. MAGNESIUM [Concomitant]
     Active Substance: MAGNESIUM
     Route: 065
  23. METFORMIN [Concomitant]
     Active Substance: METFORMIN HYDROCHLORIDE
     Route: 065
  24. OMEPRAZOLE [Concomitant]
     Active Substance: OMEPRAZOLE
     Dosage: 20 MG, BID (2 EVERY 1 DAYS)
     Route: 065
  25. ROSUVASTATIN [Concomitant]
     Active Substance: ROSUVASTATIN
     Indication: Product used for unknown indication
     Route: 065
  26. ALBUTEROL [Concomitant]
     Active Substance: ALBUTEROL
     Route: 065
  27. SEMAGLUTIDE [Concomitant]
     Active Substance: SEMAGLUTIDE
     Indication: Product used for unknown indication
     Dosage: 1 ML, QD (1 EVERY 1 DAYS)
     Route: 065
  28. SPIRONOLACTONE [Concomitant]
     Active Substance: SPIRONOLACTONE
     Route: 065
  29. SYNTHROID [Concomitant]
     Active Substance: LEVOTHYROXINE SODIUM
     Route: 065
  30. TOZINAMERAN [Concomitant]
     Active Substance: TOZINAMERAN
     Route: 065
  31. VITAMIN C [Concomitant]
     Active Substance: ASCORBIC ACID
     Route: 065
  32. VITAMIN D [Concomitant]
     Active Substance: VITAMIN D NOS
     Route: 065
  33. ZOPICLONE [Concomitant]
     Active Substance: ZOPICLONE
     Route: 065
  34. INSULIN NOS [Concomitant]
     Active Substance: INSULIN NOS
     Dosage: 1 ML, QD
     Route: 065

REACTIONS (15)
  - Abdominal pain upper [Unknown]
  - Colitis [Unknown]
  - Device infusion issue [Unknown]
  - Diarrhoea [Unknown]
  - Eye infection [Unknown]
  - Gastrointestinal disorder [Unknown]
  - Haematochezia [Unknown]
  - Headache [Unknown]
  - Helicobacter infection [Unknown]
  - Illness [Unknown]
  - Infection [Unknown]
  - Intestinal ischaemia [Unknown]
  - Polypectomy [Unknown]
  - Sinusitis [Unknown]
  - Off label use [Unknown]
